FAERS Safety Report 4367893-8 (Version None)
Quarter: 2004Q2

REPORT INFORMATION
  Report Type: 
  Country: None (occurrence: None)
  Receive Date: 20040601
  Receipt Date: 20040601
  Transmission Date: 20050107
  Serious: Yes (Life-Threatening, Hospitalization)
  Sender: FDA-Public Use
  Company Number: None

PATIENT
  Age: 64 Year
  Sex: Male
  Weight: 71 kg

DRUGS (18)
  1. EMEND [Suspect]
     Indication: MALIGNANT MELANOMA STAGE III
     Dosage: 125 MG X 1 ORAL
     Route: 048
     Dates: start: 20040213, end: 20040217
  2. DACARBAZINE [Concomitant]
  3. VINBLASTINE SULFATE [Concomitant]
  4. CISPLATIN [Concomitant]
  5. PROLEUKIN [Concomitant]
  6. INTRON A [Concomitant]
  7. BENADRYL [Concomitant]
  8. TYLENOL [Concomitant]
  9. REGLAN [Concomitant]
  10. BACTROBAN [Concomitant]
  11. EUCERIN [Concomitant]
  12. PROTONIX [Concomitant]
  13. DEMEROL [Concomitant]
  14. ATARAX [Concomitant]
  15. LOMOTIL [Concomitant]
  16. TINCTURE OF OPIUM [Concomitant]
  17. VASELINE [Concomitant]
  18. NEULASTA [Concomitant]

REACTIONS (8)
  - FATIGUE [None]
  - FEELING ABNORMAL [None]
  - HAEMOGLOBIN DECREASED [None]
  - PLATELET COUNT DECREASED [None]
  - PNEUMONIA [None]
  - PYREXIA [None]
  - RESPIRATORY TRACT INFECTION [None]
  - WHITE BLOOD CELL COUNT DECREASED [None]
